FAERS Safety Report 9171463 (Version 1)
Quarter: 2013Q1

REPORT INFORMATION
  Report Type: Spontaneous
  Country: US (occurrence: US)
  Receive Date: 20130319
  Receipt Date: 20130319
  Transmission Date: 20140127
  Serious: Yes (Other)
  Sender: FDA-Public Use
  Company Number: US-BAYER-2013-031324

PATIENT
  Age: 34 Year
  Sex: Female

DRUGS (1)
  1. MIRENA [Suspect]
     Indication: CONTRACEPTION
     Dosage: 20 MCG/24HR, CONT
     Route: 015
     Dates: start: 20121004, end: 20121019

REACTIONS (7)
  - Device dislocation [None]
  - Discomfort [None]
  - Abdominal pain [None]
  - Bladder pain [None]
  - Bladder spasm [None]
  - Genital haemorrhage [Recovering/Resolving]
  - Genital haemorrhage [None]
